FAERS Safety Report 7907020-0 (Version None)
Quarter: 2011Q4

REPORT INFORMATION
  Report Type: 
  Country: None (occurrence: None)
  Receive Date: 20111109
  Receipt Date: 20111109
  Transmission Date: 20120403
  Serious: Yes (Other)
  Sender: FDA-Public Use
  Company Number: None

PATIENT
  Age: 74 Year
  Sex: Female
  Weight: 58.9676 kg

DRUGS (1)
  1. AZITHROMYCIN [Suspect]
     Indication: PHARYNGITIS
     Dosage: 5 DOSES 1 DOSE DAILY 2 TABS TO START
     Dates: start: 20110616

REACTIONS (9)
  - VISUAL IMPAIRMENT [None]
  - DYSGEUSIA [None]
  - SALIVARY HYPERSECRETION [None]
  - MUSCULAR WEAKNESS [None]
  - ANXIETY [None]
  - HEART RATE IRREGULAR [None]
  - HYPOPHAGIA [None]
  - DIZZINESS [None]
  - WEIGHT DECREASED [None]
